FAERS Safety Report 5243389-6 (Version None)
Quarter: 2007Q1

REPORT INFORMATION
  Report Type: 
  Country: None (occurrence: None)
  Receive Date: 20061201
  Receipt Date: 20060818
  Transmission Date: 20070707
  Serious: No
  Sender: FDA-Public Use
  Company Number: 2006PV014374

PATIENT
  Age: 62 Year
  Sex: Male
  Weight: 155.1302 kg

DRUGS (10)
  1. BYETTA [Suspect]
     Indication: DIABETES MELLITUS NON-INSULIN-DEPENDENT
     Dosage: SEE IMAGE
     Route: 058
     Dates: start: 20060519, end: 20060101
  2. BYETTA [Suspect]
     Indication: DIABETES MELLITUS NON-INSULIN-DEPENDENT
     Dosage: SEE IMAGE
     Route: 058
     Dates: start: 20060601
  3. GLUCOPHAGE [Concomitant]
  4. INSULIN [Concomitant]
  5. METFORMIN [Concomitant]
  6. ACTOS [Concomitant]
  7. DICYCLOMINE [Concomitant]
  8. IMODIUM [Concomitant]
  9. NOVOLOG [Concomitant]
  10. LANTUS [Concomitant]

REACTIONS (6)
  - DRUG EFFECT DECREASED [None]
  - INJECTION SITE HAEMORRHAGE [None]
  - NAUSEA [None]
  - THERAPEUTIC RESPONSE UNEXPECTED [None]
  - VOMITING [None]
  - WEIGHT DECREASED [None]
